FAERS Safety Report 15740422 (Version 1)
Quarter: 2018Q4

REPORT INFORMATION
  Report Type: Spontaneous
  Country: US (occurrence: US)
  Receive Date: 20181204
  Receipt Date: 20181204
  Transmission Date: 20190205
  Serious: Yes (Life-Threatening)
  Sender: FDA-Public Use
  Company Number: None

PATIENT
  Age: 70 Year
  Weight: 119.8 kg

DRUGS (2)
  1. ROCURONIUM BROMIDE. [Suspect]
     Active Substance: ROCURONIUM BROMIDE
     Indication: SURGERY
     Route: 042
     Dates: start: 20180720, end: 20180720
  2. ETOMIDATE. [Suspect]
     Active Substance: ETOMIDATE
     Indication: SURGERY
     Route: 042
     Dates: start: 20180720, end: 20180720

REACTIONS (3)
  - Procedural complication [None]
  - Airway complication of anaesthesia [None]
  - Anaphylactic reaction [None]

NARRATIVE: CASE EVENT DATE: 20180720
